FAERS Safety Report 4543420-7 (Version None)
Quarter: 2005Q1

REPORT INFORMATION
  Report Type: 
  Country: None (occurrence: None)
  Receive Date: 20050103
  Receipt Date: 20041214
  Transmission Date: 20050727
  Serious: Yes (Hospitalization)
  Sender: FDA-Public Use
  Company Number: JP-MERCK-0412USA01829

PATIENT
  Age: 64 Year
  Sex: Female
  Weight: 49 kg

DRUGS (4)
  1. FOSAMAX [Suspect]
     Indication: OSTEOPOROSIS
     Route: 048
     Dates: start: 20021217, end: 20041206
  2. NEUROTROPIN [Concomitant]
     Indication: SPINAL OSTEOARTHRITIS
     Route: 048
     Dates: start: 20021210, end: 20041206
  3. MARZULENE-S [Concomitant]
     Indication: GASTRITIS
     Route: 048
     Dates: start: 20021210, end: 20041206
  4. DEPAS [Concomitant]
     Indication: INSOMNIA
     Route: 048
     Dates: start: 20021224

REACTIONS (5)
  - BLOOD GLUCOSE INCREASED [None]
  - HEPATIC ADENOMA [None]
  - HISTIOCYTOSIS HAEMATOPHAGIC [None]
  - LYMPHOMA [None]
  - PYREXIA [None]
